FAERS Safety Report 10483340 (Version 2)
Quarter: 2014Q3

REPORT INFORMATION
  Report Type: Spontaneous
  Country: ES (occurrence: ES)
  Receive Date: 20140930
  Receipt Date: 20140930
  Transmission Date: 20150326
  Serious: Yes (Other)
  Sender: FDA-Public Use
  Company Number: ES-RANBAXY-2013R1-67533

PATIENT
  Age: 45 Year
  Sex: Female

DRUGS (3)
  1. IMIPRAMINE [Concomitant]
     Active Substance: IMIPRAMINE
     Indication: IRRITABLE BOWEL SYNDROME
     Dosage: 20 MG, DAILY
     Route: 065
  2. CLARITHROMYCIN. [Suspect]
     Active Substance: CLARITHROMYCIN
     Indication: PEPTIC ULCER
     Dosage: 1000 MG, DAILY
     Route: 065
  3. OMEPRAZOLE. [Concomitant]
     Active Substance: OMEPRAZOLE
     Indication: PEPTIC ULCER
     Dosage: 20 MG, DAILY
     Route: 065

REACTIONS (2)
  - Mood disorder due to a general medical condition [Recovered/Resolved]
  - Mania [Recovered/Resolved]
